FAERS Safety Report 9112255 (Version 1)
Quarter: 2013Q1

REPORT INFORMATION
  Report Type: Spontaneous
  Country: US (occurrence: US)
  Receive Date: 20130219
  Receipt Date: 20130219
  Transmission Date: 20140127
  Serious: No
  Sender: FDA-Public Use
  Company Number: US-BRISTOL-MYERS SQUIBB COMPANY-16406944

PATIENT
  Age: 77 Year
  Sex: Female

DRUGS (1)
  1. ORENCIA [Suspect]
     Indication: RHEUMATOID ARTHRITIS
     Dosage: INF,1ST SQ DOSE ON 13FEB12
     Route: 058
     Dates: start: 20120210

REACTIONS (3)
  - Oral herpes [Unknown]
  - Bronchospasm [Unknown]
  - Chest discomfort [Unknown]
